FAERS Safety Report 13408308 (Version 1)
Quarter: 2017Q2

REPORT INFORMATION
  Report Type: Spontaneous
  Country: US (occurrence: US)
  Receive Date: 20170405
  Receipt Date: 20170405
  Transmission Date: 20170830
  Serious: Yes (Other)
  Sender: FDA-Public Use
  Company Number: None

PATIENT
  Age: 68 Year
  Sex: Male
  Weight: 90 kg

DRUGS (1)
  1. UPTRAVI [Suspect]
     Active Substance: SELEXIPAG
     Indication: PULMONARY HYPERTENSION
     Dosage: ?          OTHER STRENGTH:MCG;QUANTITY:1 TABLET(S);?EVERY 12 HOURS ORAL?
     Route: 048
     Dates: start: 20170313

REACTIONS (2)
  - Headache [None]
  - Pain [None]

NARRATIVE: CASE EVENT DATE: 20170301
